FAERS Safety Report 24737087 (Version 1)
Quarter: 2024Q4

REPORT INFORMATION
  Report Type: Other
  Country: TW (occurrence: TW)
  Receive Date: 20241216
  Receipt Date: 20241216
  Transmission Date: 20250115
  Serious: Yes (Death, Hospitalization, Other)
  Sender: ANI
  Company Number: TW-ANIPHARMA-014082

PATIENT
  Sex: Male

DRUGS (5)
  1. OXACILLIN [Suspect]
     Active Substance: OXACILLIN SODIUM
     Indication: Staphylococcal scalded skin syndrome
     Dosage: ANTIBIOTIC TREATMENT
  2. GENTAMICIN [Concomitant]
     Active Substance: GENTAMICIN
     Indication: Staphylococcal scalded skin syndrome
  3. CLINDAMYCIN [Concomitant]
     Active Substance: CLINDAMYCIN
     Indication: Staphylococcal scalded skin syndrome
     Dosage: ANTIBIOTIC TREATMENT
  4. MEROPENEM [Concomitant]
     Active Substance: MEROPENEM
     Indication: Staphylococcal scalded skin syndrome
     Dosage: ANTIBIOTIC TREATMENT
  5. FLUCONAZOLE [Concomitant]
     Active Substance: FLUCONAZOLE
     Indication: Antifungal prophylaxis

REACTIONS (1)
  - Neonatal candida infection [Fatal]
